FAERS Safety Report 5408339-8 (Version None)
Quarter: 2007Q3

REPORT INFORMATION
  Report Type: 
  Country: None (occurrence: None)
  Receive Date: 20070806
  Receipt Date: 20070806
  Transmission Date: 20080115
  Serious: No
  Sender: FDA-Public Use
  Company Number: None

PATIENT
  Sex: Female
  Weight: 48.53 kg

DRUGS (1)
  1. TEMOZOLOMIDE [Suspect]
     Dosage: 3300 MG

REACTIONS (2)
  - DRUG TOXICITY [None]
  - PLATELET COUNT DECREASED [None]
